FAERS Safety Report 9529342 (Version 1)
Quarter: 2013Q1

REPORT INFORMATION
  Report Type: Spontaneous
  Country: US (occurrence: None)
  Receive Date: 20130329
  Receipt Date: 20130329
  Transmission Date: 20140127
  Serious: No
  Sender: FDA-Public Use
  Company Number: 1000042505

PATIENT
  Age: 32 Year
  Sex: Female

DRUGS (2)
  1. LINZESS (LINACLOTIDE) (250 MICROGRAM, CAPSULES) [Suspect]
     Indication: IRRITABLE BOWEL SYNDROME
     Route: 048
  2. LINZESS (LINACLOTIDE) (250 MICROGRAM, CAPSULES) [Suspect]
     Indication: CONSTIPATION
     Route: 048

REACTIONS (1)
  - Diarrhoea [None]
